FAERS Safety Report 26044985 (Version 2)
Quarter: 2025Q4

REPORT INFORMATION
  Report Type: Spontaneous
  Country: PS (occurrence: PS)
  Receive Date: 20251114
  Receipt Date: 20251219
  Transmission Date: 20260118
  Serious: Yes (Hospitalization)
  Sender: ACCORD
  Company Number: PS-MLMSERVICE-20251024-PI687276-00152-1

PATIENT
  Age: 59 Year
  Sex: Male

DRUGS (12)
  1. FLUOROURACIL [Interacting]
     Active Substance: FLUOROURACIL
     Indication: Adenocarcinoma of colon
     Dates: end: 20250415
  2. IRINOTECAN [Interacting]
     Active Substance: IRINOTECAN
     Indication: Adenocarcinoma of colon
     Dates: end: 20250415
  3. CETUXIMAB [Interacting]
     Active Substance: CETUXIMAB
     Indication: Adenocarcinoma of colon
     Dates: end: 20250415
  4. LEUCOVORIN [Interacting]
     Active Substance: LEUCOVORIN\LEUCOVORIN CALCIUM
     Indication: Adenocarcinoma of colon
     Dates: end: 20250415
  5. FLUOROURACIL [Interacting]
     Active Substance: FLUOROURACIL
     Indication: Metastases to bladder
     Dates: end: 20250415
  6. FLUOROURACIL [Interacting]
     Active Substance: FLUOROURACIL
     Indication: Metastases to liver
     Dates: end: 20250415
  7. IRINOTECAN [Interacting]
     Active Substance: IRINOTECAN
     Indication: Metastases to bladder
     Dates: end: 20250415
  8. IRINOTECAN [Interacting]
     Active Substance: IRINOTECAN
     Indication: Metastases to liver
     Dates: end: 20250415
  9. CETUXIMAB [Interacting]
     Active Substance: CETUXIMAB
     Indication: Metastases to bladder
     Dates: end: 20250415
  10. CETUXIMAB [Interacting]
     Active Substance: CETUXIMAB
     Indication: Metastases to liver
     Dates: end: 20250415
  11. LEUCOVORIN [Interacting]
     Active Substance: LEUCOVORIN\LEUCOVORIN CALCIUM
     Indication: Metastases to bladder
     Dates: end: 20250415
  12. LEUCOVORIN [Interacting]
     Active Substance: LEUCOVORIN\LEUCOVORIN CALCIUM
     Indication: Metastases to liver
     Dates: end: 20250415

REACTIONS (11)
  - Coeliac artery aneurysm [Recovered/Resolved]
  - Artery dissection [Recovered/Resolved]
  - Hyponatraemia [Unknown]
  - Thrombocytopenia [Unknown]
  - Acute kidney injury [Recovered/Resolved]
  - Potentiating drug interaction [Unknown]
  - Leukopenia [Recovered/Resolved]
  - C-reactive protein increased [Recovered/Resolved]
  - Blood alkaline phosphatase increased [Recovered/Resolved]
  - Gamma-glutamyltransferase increased [Recovered/Resolved]
  - International normalised ratio increased [Recovered/Resolved]

NARRATIVE: CASE EVENT DATE: 20250401
